FAERS Safety Report 4310343-8 (Version None)
Quarter: 2004Q1

REPORT INFORMATION
  Report Type: 
  Country: None (occurrence: None)
  Receive Date: 20040303
  Receipt Date: 20040220
  Transmission Date: 20041129
  Serious: Yes (Other)
  Sender: FDA-Public Use
  Company Number: US-BRISTOL-MYERS SQUIBB COMPANY-12513362

PATIENT
  Age: 8 Year
  Sex: Male

DRUGS (1)
  1. ABILIFY [Suspect]
     Indication: PERVASIVE DEVELOPMENTAL DISORDER

REACTIONS (2)
  - HYPERSENSITIVITY [None]
  - RASH MACULO-PAPULAR [None]
